FAERS Safety Report 17884492 (Version 20)
Quarter: 2023Q1

REPORT INFORMATION
  Report Type: Spontaneous
  Country: US (occurrence: US)
  Receive Date: 20200611
  Receipt Date: 20230105
  Transmission Date: 20230418
  Serious: Yes (Other)
  Sender: FDA-Public Use
  Company Number: US-PFIZER INC-2020227838

PATIENT
  Age: 68 Year
  Sex: Female
  Weight: 59.42 kg

DRUGS (5)
  1. PREMARIN [Suspect]
     Active Substance: ESTROGENS, CONJUGATED
     Indication: Vulvovaginal dryness
     Dosage: UNK (THREE TIMES WEEKLY)
     Route: 067
     Dates: end: 2019
  2. PREMARIN [Suspect]
     Active Substance: ESTROGENS, CONJUGATED
     Indication: Dyspareunia
     Dosage: UNK, 2X/WEEK (SIG: 1 UNIT 2 X WEEKLY)
     Route: 067
  3. PREMARIN [Suspect]
     Active Substance: ESTROGENS, CONJUGATED
     Indication: Atrophic vulvovaginitis
     Dosage: 0.5 DF, ALTERNATE DAY (USED IT EVERY OTHER DAY)
  4. LEVOTHYROXINE SODIUM [Concomitant]
     Active Substance: LEVOTHYROXINE SODIUM
     Indication: Thyroid disorder
     Dosage: 88 MG, DAILY
  5. OMEPRAZOLE SODIUM [Concomitant]
     Active Substance: OMEPRAZOLE SODIUM
     Indication: Gastrooesophageal reflux disease
     Dosage: 40 MG, DAILY

REACTIONS (5)
  - Drug dependence [Unknown]
  - Knee arthroplasty [Unknown]
  - Off label use [Unknown]
  - Intentional product use issue [Unknown]
  - Frustration tolerance decreased [Unknown]
